FAERS Safety Report 8881122 (Version 1)
Quarter: 2012Q4

REPORT INFORMATION
  Report Type: 
  Country: US (occurrence: US)
  Receive Date: 20121031
  Receipt Date: 20121031
  Transmission Date: 20130627
  Serious: No
  Sender: FDA-Public Use
  Company Number: US-B.I. PHARMACEUTICALS,INC./RIDGEFIELD-2012-BP-26600BP

PATIENT
  Sex: Female

DRUGS (26)
  1. SPIRIVA [Suspect]
     Indication: CHRONIC OBSTRUCTIVE PULMONARY DISEASE
     Dosage: 18 mcg
     Route: 055
     Dates: start: 201203
  2. CRESTOR [Concomitant]
     Indication: BLOOD CHOLESTEROL INCREASED
     Dosage: 40 mg
     Route: 048
     Dates: start: 201203
  3. MIRTAZAPINE [Concomitant]
     Dosage: 15 mg
     Route: 048
  4. OMEGA 3 FISH OIL [Concomitant]
     Indication: BLOOD CHOLESTEROL INCREASED
     Dosage: 1000 mg
     Route: 048
  5. OXYGEN [Concomitant]
     Indication: CHRONIC OBSTRUCTIVE PULMONARY DISEASE
     Route: 055
  6. GABAPENTIN [Concomitant]
     Indication: DIABETIC NEUROPATHY
     Dosage: 1200 mg
     Route: 048
  7. ASPIRIN [Concomitant]
     Indication: CARDIAC DISORDER
     Dosage: 81 mg
     Route: 048
  8. SALINE NASAL SPRAY [Concomitant]
     Indication: NASAL DRYNESS
     Route: 045
  9. SYMBICORT [Concomitant]
     Indication: CHRONIC OBSTRUCTIVE PULMONARY DISEASE
     Route: 055
     Dates: start: 201203
  10. TRAZODONE [Concomitant]
     Indication: SLEEP DISORDER
     Dosage: 100 mg
     Route: 048
  11. DALIRESP [Concomitant]
     Indication: CHRONIC OBSTRUCTIVE PULMONARY DISEASE
     Dosage: 500 mg
     Route: 048
     Dates: start: 201203
  12. LEVETIRACETAM [Concomitant]
     Indication: HEADACHE
     Dosage: 1500 mg
     Route: 048
     Dates: start: 2010
  13. LEVETIRACETAM [Concomitant]
     Indication: INTERVERTEBRAL DISC DEGENERATION
  14. CLONAZEPAM [Concomitant]
     Indication: ANXIETY
     Dosage: 1.5 mg
     Route: 048
     Dates: start: 2011
  15. CLONAZEPAM [Concomitant]
     Indication: PANIC ATTACK
  16. VITAMIN B12 SHOTS [Concomitant]
     Indication: VITAMIN B12 DEFICIENCY
     Dosage: 1 ml
     Route: 030
  17. ABILIFY [Concomitant]
     Indication: DEPRESSION
     Dosage: 20 mg
     Route: 048
     Dates: start: 201209
  18. ABILIFY [Concomitant]
     Indication: MEMORY IMPAIRMENT
  19. ABILIFY [Concomitant]
     Indication: ANGER
  20. ALBUTEROL [Concomitant]
     Indication: ASTHMA
     Route: 048
  21. VIIBRYD [Concomitant]
     Indication: DEPRESSION
     Dosage: 20 mg
     Route: 048
     Dates: start: 2011
  22. FLUTICASONE PROPIONATE [Concomitant]
     Indication: SINUS DISORDER
     Dosage: 50 mg
     Route: 045
     Dates: start: 2011
  23. VITAMIN D [Concomitant]
     Indication: VITAMIN D DEFICIENCY
     Dosage: 5000 U
     Route: 048
  24. LISINOPRIL [Concomitant]
     Indication: HYPERTENSION
     Dosage: 40 mg
     Route: 048
  25. METFORMIN [Concomitant]
     Indication: DIABETES MELLITUS
     Dosage: 1000 mg
     Route: 048
  26. CLOPIDOGREL [Concomitant]
     Indication: ARTERIOSCLEROSIS
     Dosage: 75 mg
     Route: 048

REACTIONS (3)
  - Memory impairment [Not Recovered/Not Resolved]
  - Dementia [Unknown]
  - Depression [Not Recovered/Not Resolved]
